FAERS Safety Report 7526227-8 (Version None)
Quarter: 2011Q2

REPORT INFORMATION
  Report Type: 
  Country: None (occurrence: None)
  Receive Date: 20110606
  Receipt Date: 20110601
  Transmission Date: 20111010
  Serious: Yes (Hospitalization)
  Sender: FDA-Public Use
  Company Number: DE-BRISTOL-MYERS SQUIBB COMPANY-15152879

PATIENT
  Age: 31 Year
  Sex: Female
  Weight: 72 kg

DRUGS (4)
  1. ABILIFY [Suspect]
     Indication: SCHIZOAFFECTIVE DISORDER
     Dates: start: 20090301
  2. NEUROLEPTIC AGENT [Concomitant]
  3. FOLSAN [Concomitant]
     Dates: start: 20100801
  4. ESCITALOPRAM [Suspect]
     Indication: SCHIZOAFFECTIVE DISORDER
     Dates: start: 20060301

REACTIONS (3)
  - PREGNANCY [None]
  - PREMATURE RUPTURE OF MEMBRANES [None]
  - ABORTION INDUCED [None]
